FAERS Safety Report 9069187 (Version 1)
Quarter: 2013Q1

REPORT INFORMATION
  Report Type: Report from Study
  Country: US (occurrence: US)
  Receive Date: 20130131
  Receipt Date: 20130131
  Transmission Date: 20140127
  Serious: No
  Sender: FDA-Public Use
  Company Number: US-ABBOTT-12P-163-0999847-00

PATIENT
  Age: 77 Year
  Sex: Female
  Weight: 59.47 kg

DRUGS (1)
  1. HUMIRA [Suspect]
     Indication: RHEUMATOID ARTHRITIS
     Route: 058
     Dates: start: 20120820

REACTIONS (2)
  - Respiratory tract congestion [Recovering/Resolving]
  - Cough [Recovering/Resolving]
